FAERS Safety Report 9528454 (Version 4)
Quarter: 2013Q4

REPORT INFORMATION
  Report Type: Report from Study
  Country: JP (occurrence: JP)
  Receive Date: 20130917
  Receipt Date: 20131231
  Transmission Date: 20140711
  Serious: Yes (Hospitalization)
  Sender: FDA-Public Use
  Company Number: JP-ABBVIE-13P-087-1143385-00

PATIENT
  Age: 50 Year
  Sex: Female
  Weight: 49.4 kg

DRUGS (11)
  1. HUMIRA [Suspect]
     Indication: RHEUMATOID ARTHRITIS
     Route: 058
     Dates: start: 20121017, end: 20121226
  2. HUMIRA [Suspect]
     Dates: start: 20130207
  3. PREDNISOLONE [Suspect]
     Indication: RHEUMATOID ARTHRITIS
     Dosage: 3 MG DAILY
     Route: 048
  4. SALAZOSULFAPYRIDINE [Concomitant]
     Indication: RHEUMATOID ARTHRITIS
     Dosage: 500 MG DAILY
  5. ALFACALCIDOL [Concomitant]
     Indication: OSTEOPOROSIS PROPHYLAXIS
     Route: 048
  6. REBAMIPIDE [Concomitant]
     Indication: GASTRITIS PROPHYLAXIS
     Route: 048
  7. SODIUM RISEDRONATE HYDRATE [Concomitant]
     Indication: OSTEOPOROSIS PROPHYLAXIS
     Route: 048
  8. SULFAMETHOXAZOLE AND TRIMETHOPRIM [Concomitant]
     Indication: ANTIFUNGAL PROPHYLAXIS
     Route: 048
  9. KETOPROFEN [Concomitant]
     Indication: RHEUMATOID ARTHRITIS
     Route: 062
  10. SENNOSIDE [Concomitant]
     Indication: PRODUCT USED FOR UNKNOWN INDICATION
     Route: 048
  11. ZOLPIDEM TARTRATE [Concomitant]
     Indication: PREOPERATIVE CARE
     Route: 048

REACTIONS (4)
  - Arthralgia [Unknown]
  - Oral herpes [Recovered/Resolved]
  - Injection site erythema [Recovered/Resolved]
  - Lip blister [Unknown]
